FAERS Safety Report 22605874 (Version 1)
Quarter: 2023Q2

REPORT INFORMATION
  Report Type: Spontaneous
  Country: US (occurrence: None)
  Receive Date: 20230614
  Receipt Date: 20230614
  Transmission Date: 20230721
  Serious: No
  Sender: FDA-Public Use
  Company Number: None

PATIENT

DRUGS (2)
  1. TYMLOS [Suspect]
     Active Substance: ABALOPARATIDE
  2. TYMLOS [Concomitant]
     Active Substance: ABALOPARATIDE

REACTIONS (1)
  - Eye swelling [None]

NARRATIVE: CASE EVENT DATE: 20230613
